FAERS Safety Report 19149801 (Version 1)
Quarter: 2021Q2

REPORT INFORMATION
  Report Type: Report from Study
  Country: US (occurrence: US)
  Receive Date: 20210416
  Receipt Date: 20210416
  Transmission Date: 20210717
  Serious: Yes (Hospitalization)
  Sender: FDA-Public Use
  Company Number: US-SUN PHARMACEUTICAL INDUSTRIES LTD-2021R1-291883

PATIENT
  Age: 19 Year
  Sex: Female

DRUGS (2)
  1. HALOPERIDOL. [Suspect]
     Active Substance: HALOPERIDOL
     Indication: AGITATION
     Dosage: 2.5 MG
     Route: 030
  2. PALIPERIDONE. [Suspect]
     Active Substance: PALIPERIDONE
     Indication: AGITATION
     Dosage: 6 MG
     Route: 048

REACTIONS (1)
  - Catatonia [Recovered/Resolved]
